FAERS Safety Report 23133851 (Version 1)
Quarter: 2023Q4

REPORT INFORMATION
  Report Type: Spontaneous
  Country: CN (occurrence: CN)
  Receive Date: 20231101
  Receipt Date: 20231101
  Transmission Date: 20240110
  Serious: Yes (Other)
  Sender: FDA-Public Use
  Company Number: CN-AMGEN-CHNSP2023191603

PATIENT
  Age: 1 Year
  Sex: Male

DRUGS (2)
  1. BLINATUMOMAB [Suspect]
     Active Substance: BLINATUMOMAB
     Indication: B precursor type acute leukaemia
     Dosage: 5 MICROGRAM, QD FOR 7 DAYS
     Route: 042
  2. BLINATUMOMAB [Suspect]
     Active Substance: BLINATUMOMAB
     Dosage: 15 MICROGRAM, QD FOR 28 DAYS
     Route: 042

REACTIONS (2)
  - Acute lymphocytic leukaemia recurrent [Unknown]
  - Cytokine release syndrome [Unknown]
